FAERS Safety Report 5469129-3 (Version None)
Quarter: 2007Q3

REPORT INFORMATION
  Report Type: 
  Country: None (occurrence: None)
  Receive Date: 20070927
  Receipt Date: 20070917
  Transmission Date: 20080115
  Serious: Yes (Other)
  Sender: FDA-Public Use
  Company Number: PHBS2007US15871

PATIENT
  Age: 5 Year
  Sex: Female

DRUGS (2)
  1. LETROZOLE [Suspect]
     Indication: PRECOCIOUS PUBERTY
     Route: 065
  2. LETROZOLE [Suspect]
     Dosage: 2 MG/M2/D
     Route: 065

REACTIONS (5)
  - ABDOMINAL PAIN [None]
  - CYST REMOVAL [None]
  - OVARIAN CYST [None]
  - OVARIAN TORSION [None]
  - VOMITING [None]
